FAERS Safety Report 7648148-2 (Version None)
Quarter: 2011Q3

REPORT INFORMATION
  Report Type: 
  Country: None (occurrence: None)
  Receive Date: 20110801
  Receipt Date: 20110729
  Transmission Date: 20111222
  Serious: Yes (Death, Other)
  Sender: FDA-Public Use
  Company Number: FR-PFIZER INC-2011165364

PATIENT
  Age: 68 Year
  Sex: Male

DRUGS (4)
  1. PRAVASTATIN [Suspect]
     Indication: DYSLIPIDAEMIA
     Dosage: 1 DF, DAILY
     Route: 048
     Dates: start: 20050101, end: 20050101
  2. ATORVASTATIN CALCIUM [Suspect]
     Indication: DYSLIPIDAEMIA
     Dosage: 1 DF, DAILY
     Route: 048
     Dates: start: 20050101, end: 20050101
  3. ATENOLOL [Suspect]
     Dosage: 1 DF, DAILY
     Route: 048
     Dates: start: 20050101
  4. MEDIATOR [Concomitant]
     Indication: OVERWEIGHT
     Dosage: 150 MG, DAILY
     Route: 048
     Dates: start: 20060308, end: 20080101

REACTIONS (5)
  - DEATH [None]
  - GAIT DISTURBANCE [None]
  - HEPATIC NEOPLASM MALIGNANT [None]
  - FATIGUE [None]
  - DYSPNOEA [None]
